FAERS Safety Report 23500150 (Version 1)
Quarter: 2024Q1

REPORT INFORMATION
  Report Type: Spontaneous
  Country: US (occurrence: None)
  Receive Date: 20240207
  Receipt Date: 20240207
  Transmission Date: 20240410
  Serious: Yes (unspecified)
  Sender: FDA-Public Use
  Company Number: None

PATIENT
  Age: 34 Year
  Sex: Female
  Weight: 75.15 kg

DRUGS (2)
  1. BUPRENORPHINE\NALOXONE [Suspect]
     Active Substance: BUPRENORPHINE\NALOXONE
     Indication: Drug use disorder
     Dosage: FREQUENCY : ONCE;?
     Route: 060
     Dates: start: 20240207, end: 20240207
  2. buprenorphine-naloxone 8-2 mg sublingual tablet [Concomitant]
     Dates: start: 20240207, end: 20240207

REACTIONS (5)
  - Headache [None]
  - Nausea [None]
  - Urticaria [None]
  - Pruritus [None]
  - Drug intolerance [None]

NARRATIVE: CASE EVENT DATE: 20240207
